FAERS Safety Report 20908207 (Version 1)
Quarter: 2022Q2

REPORT INFORMATION
  Report Type: Spontaneous
  Country: US (occurrence: US)
  Receive Date: 20220602
  Receipt Date: 20220602
  Transmission Date: 20220720
  Serious: Yes (Hospitalization)
  Sender: FDA-Public Use
  Company Number: US-JNJFOC-20220562352

PATIENT
  Age: 6 Decade
  Sex: Male

DRUGS (18)
  1. DARZALEX [Suspect]
     Active Substance: DARATUMUMAB
     Indication: Plasma cell myeloma
     Dosage: LAST ADMINISTRATION ON MAR-2022
     Route: 065
     Dates: start: 20210325
  2. DARZALEX [Suspect]
     Active Substance: DARATUMUMAB
     Dosage: LAST ADMINISTRATION ON MAR-2022
     Route: 065
     Dates: start: 20210608
  3. LENALIDOMIDE [Suspect]
     Active Substance: LENALIDOMIDE
     Indication: Plasma cell myeloma
     Dosage: LAST ADMINISTRATION ON MAR-2022
     Route: 065
  4. CYTOXAN [Suspect]
     Active Substance: CYCLOPHOSPHAMIDE
     Indication: Plasma cell myeloma
     Dosage: C1D1
     Route: 065
     Dates: start: 20210608
  5. DEXAMETHASONE [Suspect]
     Active Substance: DEXAMETHASONE
     Indication: Plasma cell myeloma
     Dosage: C1D1
     Route: 065
     Dates: start: 20210608
  6. DEXAMETHASONE [Suspect]
     Active Substance: DEXAMETHASONE
     Route: 065
     Dates: start: 20210608
  7. DEXAMETHASONE [Suspect]
     Active Substance: DEXAMETHASONE
     Route: 065
     Dates: start: 20210811
  8. CARFILZOMIB [Concomitant]
     Active Substance: CARFILZOMIB
     Indication: Plasma cell myeloma
     Dates: start: 20210414
  9. CARFILZOMIB [Concomitant]
     Active Substance: CARFILZOMIB
     Dates: start: 20211108
  10. THALIDOMIDE [Concomitant]
     Active Substance: THALIDOMIDE
     Indication: Plasma cell myeloma
     Dates: start: 20210414
  11. THALIDOMIDE [Concomitant]
     Active Substance: THALIDOMIDE
     Dates: start: 20210811
  12. DOXORUBICIN [Concomitant]
     Active Substance: DOXORUBICIN
     Indication: Plasma cell myeloma
     Dates: start: 20210414
  13. DOXORUBICIN [Concomitant]
     Active Substance: DOXORUBICIN
     Dates: start: 20210811
  14. CYCLOPHOSPHAMIDE [Concomitant]
     Active Substance: CYCLOPHOSPHAMIDE
     Indication: Plasma cell myeloma
     Dates: start: 20210414
  15. CYCLOPHOSPHAMIDE [Concomitant]
     Active Substance: CYCLOPHOSPHAMIDE
     Dates: start: 20210811
  16. ETOPOSIDE [Concomitant]
     Active Substance: ETOPOSIDE
     Indication: Plasma cell myeloma
     Dates: start: 20210414
  17. ETOPOSIDE [Concomitant]
     Active Substance: ETOPOSIDE
     Dates: start: 20210811
  18. MELPHALAN [Concomitant]
     Active Substance: MELPHALAN
     Dates: start: 20210929

REACTIONS (2)
  - Acute kidney injury [Unknown]
  - Plasma cell myeloma [Unknown]
